FAERS Safety Report 23566794 (Version 2)
Quarter: 2024Q1

REPORT INFORMATION
  Report Type: Spontaneous
  Country: BR (occurrence: BR)
  Receive Date: 20240226
  Receipt Date: 20240301
  Transmission Date: 20240409
  Serious: No
  Sender: FDA-Public Use
  Company Number: BR-FERRINGPH-2024FE00782

PATIENT

DRUGS (3)
  1. DESMOPRESSIN [Suspect]
     Active Substance: DESMOPRESSIN
     Indication: Diabetes insipidus
     Dosage: UNK
     Route: 045
     Dates: start: 2023, end: 2023
  2. DDAVP [Suspect]
     Active Substance: DESMOPRESSIN ACETATE
     Indication: Diabetes insipidus
     Dosage: 0.2 MG, DAILY
     Route: 048
     Dates: start: 2017
  3. OMEPRAZOLE [Concomitant]
     Active Substance: OMEPRAZOLE
     Indication: Prophylaxis against gastrointestinal ulcer
     Dosage: PATIENT PERFORMS PAUSES EVERY 2 OR 3 MONTHS
     Route: 048
     Dates: start: 2019

REACTIONS (6)
  - Tachycardia [Unknown]
  - Throat tightness [Unknown]
  - Poor quality product administered [Unknown]
  - Drug ineffective [Unknown]
  - Product availability issue [Recovered/Resolved]
  - Product size issue [Unknown]

NARRATIVE: CASE EVENT DATE: 20230101
